FAERS Safety Report 4400771-4 (Version None)
Quarter: 2004Q3

REPORT INFORMATION
  Report Type: 
  Country: None (occurrence: None)
  Receive Date: 20040907
  Receipt Date: 20030602
  Transmission Date: 20050211
  Serious: No
  Sender: FDA-Public Use
  Company Number: US-BRISTOL-MYERS SQUIBB COMPANY-12290391

PATIENT
  Age: 74 Year
  Sex: Male
  Weight: 71 kg

DRUGS (3)
  1. COUMADIN [Suspect]
     Indication: TRANSIENT ISCHAEMIC ATTACK
     Dosage: DOSAGE: 4MG FOR SIX DAYS AND 6MG ONE DAY
     Route: 048
     Dates: start: 20020601
  2. COUMADIN [Suspect]
     Indication: ATRIAL FIBRILLATION
     Dosage: DOSAGE: 4MG FOR SIX DAYS AND 6MG ONE DAY
     Route: 048
     Dates: start: 20020601
  3. TOPROL-XL [Concomitant]

REACTIONS (2)
  - ARRHYTHMIA [None]
  - INTERNATIONAL NORMALISED RATIO DECREASED [None]
